FAERS Safety Report 5896010-8 (Version None)
Quarter: 2008Q3

REPORT INFORMATION
  Report Type: 
  Country: None (occurrence: None)
  Receive Date: 20080924
  Receipt Date: 20080916
  Transmission Date: 20090109
  Serious: Yes (Other)
  Sender: FDA-Public Use
  Company Number: US-ABBOTT-08P-163-0476982-00

PATIENT
  Sex: Male

DRUGS (2)
  1. LUPRON [Suspect]
     Indication: DRUG EXPOSURE DURING PREGNANCY
     Route: 064
  2. FOLLITROPIN ALFA [Suspect]
     Indication: DRUG EXPOSURE DURING PREGNANCY
     Route: 064

REACTIONS (3)
  - BREECH PRESENTATION [None]
  - DRUG EXPOSURE DURING PREGNANCY [None]
  - PREMATURE BABY [None]
